FAERS Safety Report 8339358-X (Version None)
Quarter: 2012Q2

REPORT INFORMATION
  Report Type: 
  Country: None (occurrence: None)
  Receive Date: 20120503
  Receipt Date: 20120424
  Transmission Date: 20120825
  Serious: Yes (Life-Threatening)
  Sender: FDA-Public Use
  Company Number: 2012CP000048

PATIENT
  Age: 74 Year
  Sex: Male

DRUGS (8)
  1. PROPOFOL [Suspect]
     Dosage: 160 MG; ;IV
     Route: 042
     Dates: start: 20120327
  2. ESMERON (ROCURONIUM BROMIDE) [Suspect]
     Dosage: 50 MG; ;IV
     Route: 042
     Dates: start: 20120327
  3. SUFENTA PRESERVATIVE FREE [Suspect]
     Dosage: 20 MCG; ;IV
     Route: 042
     Dates: start: 20120327
  4. PROCORALAN (IVABRADINE HYDROCHLORIDE) [Suspect]
     Indication: TACHYCARDIA
     Dosage: 7.5 MG; ;PO
     Route: 048
     Dates: start: 20120327
  5. ROPIVACAINE HYDROCHLORIDE [Suspect]
     Dosage: 6 ML; ;IV
     Route: 042
     Dates: start: 20120327
  6. KETAMINE HCL [Suspect]
     Dosage: 12 MG; ;IV
     Route: 042
     Dates: start: 20120327
  7. ACETAMINOPHEN [Suspect]
     Dosage: 1 DOSAGE FORM;  IV
     Route: 042
     Dates: start: 20120327
  8. DESFLURANE [Suspect]
     Dosage: 1 DOSAGE FORM; INH
     Route: 055

REACTIONS (2)
  - SINOATRIAL BLOCK [None]
  - CARDIAC ARREST [None]
